FAERS Safety Report 6232412-8 (Version None)
Quarter: 2009Q2

REPORT INFORMATION
  Report Type: 
  Country: None (occurrence: None)
  Receive Date: 20090617
  Receipt Date: 20090609
  Transmission Date: 20091009
  Serious: Yes (Other)
  Sender: FDA-Public Use
  Company Number: CA-JNJFOC-20090603703

PATIENT
  Sex: Male
  Weight: 89 kg

DRUGS (12)
  1. REMICADE [Suspect]
     Indication: COLITIS ULCERATIVE
     Route: 042
  2. ASAPHEN [Concomitant]
  3. PREVACID [Concomitant]
  4. CALCITE [Concomitant]
  5. SPIRIVA [Concomitant]
  6. SYMBICORT [Concomitant]
  7. LIPITOR [Concomitant]
  8. PENTASA [Concomitant]
  9. METHOTREXATE SODIUM [Concomitant]
  10. AMIODARONE [Concomitant]
  11. ALENDRONATE SODIUM [Concomitant]
  12. IMODIUM [Concomitant]

REACTIONS (1)
  - ATRIAL FIBRILLATION [None]
